FAERS Safety Report 21813284 (Version 1)
Quarter: 2023Q1

REPORT INFORMATION
  Report Type: Spontaneous
  Country: US (occurrence: US)
  Receive Date: 20230103
  Receipt Date: 20230103
  Transmission Date: 20230418
  Serious: Yes (Hospitalization)
  Sender: FDA-Public Use
  Company Number: US-CTI BIOPHARMA-2022US03280

PATIENT

DRUGS (1)
  1. VONJO [Suspect]
     Active Substance: PACRITINIB
     Indication: Myelofibrosis
     Dosage: 200 MG, BID
     Route: 048
     Dates: start: 20221112

REACTIONS (10)
  - Limb injury [Unknown]
  - Cellulitis [Unknown]
  - Blister [Unknown]
  - Balance disorder [Unknown]
  - SARS-CoV-2 test positive [Unknown]
  - Pain in extremity [Unknown]
  - Weight decreased [Unknown]
  - Eating disorder [Unknown]
  - Depressed mood [Unknown]
  - Walking aid user [Unknown]
